FAERS Safety Report 8135240-1 (Version None)
Quarter: 2012Q1

REPORT INFORMATION
  Report Type: 
  Country: None (occurrence: None)
  Receive Date: 20120214
  Receipt Date: 20120206
  Transmission Date: 20120608
  Serious: Yes (Other)
  Sender: FDA-Public Use
  Company Number: US-JNJFOC-20120111465

PATIENT
  Age: 51 Year
  Sex: Female
  Weight: 99.79 kg

DRUGS (10)
  1. TYLENOL COLD MULTI-SYMPTOM NIGHTTIME [Suspect]
     Indication: NASOPHARYNGITIS
     Route: 048
     Dates: start: 20120120, end: 20120121
  2. TYLENOL COUGH AND SEVERE CONGESTION WARMING DAYTIME [Suspect]
     Indication: INFLUENZA
     Route: 048
     Dates: start: 20120119
  3. TYLENOL COUGH AND SEVERE CONGESTION WARMING DAYTIME [Suspect]
     Indication: NASOPHARYNGITIS
     Route: 048
     Dates: start: 20120119
  4. TYLENOL COLD MULTI-SYMPTOM NIGHTTIME [Suspect]
     Indication: LYMPHADENOPATHY
     Route: 048
     Dates: start: 20120120, end: 20120121
  5. TYLENOL COLD MULTI-SYMPTOM NIGHTTIME [Suspect]
     Indication: CHEST DISCOMFORT
     Route: 048
     Dates: start: 20120120, end: 20120121
  6. TYLENOL COUGH AND SEVERE CONGESTION WARMING DAYTIME [Suspect]
     Indication: COUGH
     Route: 048
     Dates: start: 20120119
  7. VICODIN [Concomitant]
     Indication: PAIN
     Route: 065
  8. VALIUM [Concomitant]
     Indication: PRODUCT USED FOR UNKNOWN INDICATION
     Route: 065
  9. BETASERON [Concomitant]
     Indication: MULTIPLE SCLEROSIS
     Route: 065
  10. NAPROXEN (ALEVE) [Concomitant]
     Indication: PRODUCT USED FOR UNKNOWN INDICATION
     Route: 065

REACTIONS (2)
  - LEUKOCYTOCLASTIC VASCULITIS [None]
  - ACTIVITIES OF DAILY LIVING IMPAIRED [None]
